FAERS Safety Report 15276768 (Version 1)
Quarter: 2018Q3

REPORT INFORMATION
  Report Type: Spontaneous
  Country: IT (occurrence: IT)
  Receive Date: 20180814
  Receipt Date: 20180814
  Transmission Date: 20181010
  Serious: Yes (Other)
  Sender: FDA-Public Use
  Company Number: IT-PFIZER INC-2018324099

PATIENT
  Age: 35 Year
  Sex: Female

DRUGS (3)
  1. MEDROL [Concomitant]
     Active Substance: METHYLPREDNISOLONE
  2. ASACOL [Concomitant]
     Active Substance: MESALAMINE
  3. ALPRAZOLAM. [Suspect]
     Active Substance: ALPRAZOLAM
     Indication: DRUG ABUSE
     Route: 048
     Dates: start: 20180528, end: 20180528

REACTIONS (2)
  - Drug abuse [Recovering/Resolving]
  - Disturbance in attention [Recovering/Resolving]

NARRATIVE: CASE EVENT DATE: 20180528
